FAERS Safety Report 25226158 (Version 1)
Quarter: 2025Q2

REPORT INFORMATION
  Report Type: Spontaneous
  Country: NO (occurrence: NO)
  Receive Date: 20250422
  Receipt Date: 20250422
  Transmission Date: 20250716
  Serious: Yes (Other)
  Sender: OTSUKA
  Company Number: SE-MMM-Otsuka-NA1QZXIF

PATIENT
  Age: 57 Year
  Sex: Female

DRUGS (1)
  1. ABILIFY [Suspect]
     Active Substance: ARIPIPRAZOLE
     Indication: Product used for unknown indication
     Route: 065

REACTIONS (11)
  - Tooth extraction [Unknown]
  - Type 2 diabetes mellitus [Unknown]
  - Memory impairment [Unknown]
  - Balance disorder [Unknown]
  - Loose tooth [Unknown]
  - Sleep disorder [Unknown]
  - Joint stiffness [Unknown]
  - Coordination abnormal [Unknown]
  - Hypotension [Unknown]
  - Musculoskeletal stiffness [Unknown]
  - Dizziness [Unknown]
